FAERS Safety Report 20139074 (Version 1)
Quarter: 2021Q4

REPORT INFORMATION
  Report Type: Spontaneous
  Country: US (occurrence: US)
  Receive Date: 20211202
  Receipt Date: 20211202
  Transmission Date: 20220303
  Serious: No
  Sender: FDA-Public Use
  Company Number: US-AIZANT-2021AIZANTLIT00047

PATIENT
  Age: 11 Year
  Sex: Female

DRUGS (1)
  1. ALBUTEROL [Suspect]
     Active Substance: ALBUTEROL
     Indication: Asthma

REACTIONS (6)
  - Delusion [Unknown]
  - Abnormal behaviour [Unknown]
  - Paranoia [Unknown]
  - Mood altered [Unknown]
  - Anxiety [Unknown]
  - Bronchospasm paradoxical [Unknown]
